FAERS Safety Report 5878073-9 (Version None)
Quarter: 2008Q3

REPORT INFORMATION
  Report Type: 
  Country: None (occurrence: None)
  Receive Date: 20080911
  Receipt Date: 20080909
  Transmission Date: 20090109
  Serious: Yes (Other)
  Sender: FDA-Public Use
  Company Number: GB-MERCK-0705GBR00010

PATIENT
  Age: 35 Year
  Sex: Female

DRUGS (8)
  1. PROSCAR [Suspect]
     Route: 065
  2. DIBUCAINE HYDROCHLORIDE AND PREDNISOLONE HEXANOATE [Concomitant]
     Route: 054
  3. FERROUS SULFATE [Concomitant]
     Route: 065
  4. DIBUCAINE HYDROCHLORIDE AND PREDNISOLONE HEXANOATE [Concomitant]
     Route: 061
  5. ACETAMINOPHEN [Concomitant]
     Route: 065
  6. AMOXICILLIN [Concomitant]
     Route: 065
  7. CALCIUM CARBONATE AND SODIUM ALGINATE AND SODIUM BICARBONATE [Concomitant]
     Route: 065
  8. ALUMINUM HYDROXIDE AND MAGNESIUM CARBONATE [Concomitant]
     Route: 065

REACTIONS (4)
  - ADVERSE EVENT [None]
  - DRUG EXPOSURE DURING PREGNANCY [None]
  - PATERNAL DRUGS AFFECTING FOETUS [None]
  - UMBILICAL HERNIA [None]
